FAERS Safety Report 13445537 (Version 1)
Quarter: 2017Q2

REPORT INFORMATION
  Report Type: Spontaneous
  Country: US (occurrence: US)
  Receive Date: 20170415
  Receipt Date: 20170415
  Transmission Date: 20170830
  Serious: No
  Sender: FDA-Public Use
  Company Number: US-BION-005834

PATIENT
  Age: 71 Year
  Sex: Male
  Weight: 74.83 kg

DRUGS (3)
  1. LOSARTAN. [Concomitant]
     Active Substance: LOSARTAN
  2. ALEVE [Suspect]
     Active Substance: NAPROXEN SODIUM
     Indication: INFLAMMATION
  3. BAYER ASPIRIN [Suspect]
     Active Substance: ASPIRIN
     Indication: PROPHYLAXIS
     Dosage: GASTRO-RESISTANT COATED TABLET. 1 DF
     Route: 048

REACTIONS (7)
  - Product use issue [Unknown]
  - Off label use [Unknown]
  - Gastrointestinal pain [Recovered/Resolved]
  - Abdominal distension [Recovered/Resolved]
  - Incorrect dose administered [Unknown]
  - Muscle spasms [Recovered/Resolved]
  - Flatulence [Recovered/Resolved]
